FAERS Safety Report 8739910 (Version 2)
Quarter: 2012Q4

REPORT INFORMATION
  Report Type: 
  Country: US (occurrence: US)
  Receive Date: 20120823
  Receipt Date: 20120830
  Transmission Date: 20130627
  Serious: Yes (Hospitalization)
  Sender: FDA-Public Use
  Company Number: US-BAXTER-2012BAX014161

PATIENT
  Sex: Female
  Weight: 72 kg

DRUGS (2)
  1. DIANEAL PD2 [Suspect]
     Indication: END STAGE RENAL DISEASE (ESRD)
     Route: 033
  2. EXTRANEAL [Suspect]
     Indication: END STAGE RENAL DISEASE (ESRD)
     Route: 033

REACTIONS (1)
  - Gastroenteritis viral [Recovered/Resolved]
